FAERS Safety Report 17293545 (Version 2)
Quarter: 2020Q1

REPORT INFORMATION
  Report Type: Spontaneous
  Country: CH (occurrence: CH)
  Receive Date: 20200121
  Receipt Date: 20200211
  Transmission Date: 20200409
  Serious: Yes (Hospitalization, Other)
  Sender: FDA-Public Use
  Company Number: NVSC2020CH012607

PATIENT
  Sex: Female

DRUGS (2)
  1. ILARIS [Suspect]
     Active Substance: CANAKINUMAB
     Indication: AUTOINFLAMMATORY DISEASE
     Dosage: 150 MG/ML, Q4W
     Route: 058
     Dates: start: 201907
  2. INSULIN [Concomitant]
     Active Substance: INSULIN NOS
     Indication: PRODUCT USED FOR UNKNOWN INDICATION
     Dosage: UNK
     Route: 065
     Dates: start: 202001

REACTIONS (4)
  - Blood cholesterol increased [Not Recovered/Not Resolved]
  - Diabetes mellitus inadequate control [Unknown]
  - General physical health deterioration [Not Recovered/Not Resolved]
  - Gamma-glutamyltransferase increased [Unknown]
